FAERS Safety Report 8760518 (Version 1)
Quarter: 2012Q4

REPORT INFORMATION
  Report Type: 
  Country: MX (occurrence: MX)
  Receive Date: 20120830
  Receipt Date: 20120830
  Transmission Date: 20130627
  Serious: Yes (Other)
  Sender: FDA-Public Use
  Company Number: PHHY2012MX074695

PATIENT
  Age: 72 Year
  Sex: Female

DRUGS (1)
  1. STALEVO [Suspect]
     Indication: PARKINSON^S DISEASE
     Dosage: 2 tabs of 50/12.5/200 mg daily
     Dates: start: 20120816

REACTIONS (1)
  - Blood triglycerides increased [Not Recovered/Not Resolved]
